FAERS Safety Report 10855583 (Version 1)
Quarter: 2015Q1

REPORT INFORMATION
  Report Type: Spontaneous
  Country: US (occurrence: None)
  Receive Date: 20150218
  Receipt Date: 20150218
  Transmission Date: 20150721
  Serious: Yes (Congenital Anomaly)
  Sender: FDA-Public Use
  Company Number: None

PATIENT
  Sex: Female

DRUGS (2)
  1. ZOFRAN [Suspect]
     Active Substance: ONDANSETRON HYDROCHLORIDE
     Indication: PREGNANCY
     Dates: start: 20140501, end: 20150125
  2. ZOFRAN [Suspect]
     Active Substance: ONDANSETRON HYDROCHLORIDE
     Indication: NAUSEA
     Dates: start: 20140501, end: 20150125

REACTIONS (4)
  - Maternal exposure during pregnancy [None]
  - Automatic bladder [None]
  - Maternal drugs affecting foetus [None]
  - Congenital cystic kidney disease [None]
